FAERS Safety Report 5948731-6 (Version None)
Quarter: 2008Q4

REPORT INFORMATION
  Report Type: 
  Country: None (occurrence: None)
  Receive Date: 20081107
  Receipt Date: 20081029
  Transmission Date: 20090506
  Serious: Yes (Life-Threatening, Hospitalization)
  Sender: FDA-Public Use
  Company Number: 2008-03833

PATIENT
  Sex: Male

DRUGS (3)
  1. VELCADE [Suspect]
     Indication: MULTIPLE MYELOMA
     Dates: start: 20080805, end: 20081010
  2. THALIDOMIDE [Concomitant]
  3. DECADRON [Concomitant]

REACTIONS (1)
  - LARGE INTESTINE PERFORATION [None]
